FAERS Safety Report 21627521 (Version 2)
Quarter: 2024Q1

REPORT INFORMATION
  Report Type: Spontaneous
  Country: JP (occurrence: JP)
  Receive Date: 20221122
  Receipt Date: 20240222
  Transmission Date: 20240410
  Serious: Yes (Other)
  Sender: FDA-Public Use
  Company Number: JP-BRISTOL-MYERS SQUIBB COMPANY-2022-139841

PATIENT
  Age: 72 Year
  Sex: Male

DRUGS (3)
  1. LENADEX [Suspect]
     Active Substance: DEXAMETHASONE ACETATE
     Indication: Pulmonary amyloidosis
  2. LENADEX [Suspect]
     Active Substance: DEXAMETHASONE ACETATE
  3. REVLIMID [Suspect]
     Active Substance: LENALIDOMIDE
     Indication: Pulmonary amyloidosis

REACTIONS (1)
  - Pneumothorax [Unknown]
